FAERS Safety Report 19705828 (Version 4)
Quarter: 2022Q1

REPORT INFORMATION
  Report Type: Report from Study
  Country: US (occurrence: US)
  Receive Date: 20210817
  Receipt Date: 20220110
  Transmission Date: 20220423
  Serious: No
  Sender: FDA-Public Use
  Company Number: NVSC2021US181900

PATIENT
  Sex: Male

DRUGS (3)
  1. OMNITROPE [Suspect]
     Active Substance: SOMATROPIN
     Indication: Product used for unknown indication
     Dosage: 2.2 MG, QD
     Route: 058
     Dates: start: 20210806
  2. OMNITROPE [Suspect]
     Active Substance: SOMATROPIN
     Dosage: 1.8 MG, QD
     Route: 058
     Dates: start: 20210806
  3. OMNITROPE [Suspect]
     Active Substance: SOMATROPIN
     Dosage: UNK UNK, QD
     Route: 058

REACTIONS (4)
  - Device leakage [Unknown]
  - Injection site haemorrhage [Unknown]
  - Wrong technique in device usage process [Unknown]
  - Drug effect less than expected [Unknown]
